FAERS Safety Report 5724903-0 (Version None)
Quarter: 2008Q2

REPORT INFORMATION
  Report Type: 
  Country: None (occurrence: None)
  Receive Date: 20080501
  Receipt Date: 20080422
  Transmission Date: 20081010
  Serious: Yes (Congenital Anomaly)
  Sender: FDA-Public Use
  Company Number: CA-AVENTIS-200811754GDDC

PATIENT
  Age: 0 Year
  Sex: Female

DRUGS (7)
  1. LANTUS [Suspect]
     Route: 015
  2. LANTUS [Suspect]
     Route: 015
  3. INSULIN ASPART [Suspect]
     Route: 015
  4. SYNTHROID [Suspect]
     Route: 064
  5. DICLECTIN [Suspect]
     Indication: NAUSEA
     Route: 064
  6. FOLIC ACID [Concomitant]
     Route: 064
  7. PREGVIT [Concomitant]
     Route: 064

REACTIONS (3)
  - DRUG EXPOSURE DURING PREGNANCY [None]
  - JAUNDICE NEONATAL [None]
  - POLYDACTYLY [None]
